FAERS Safety Report 8366974-1 (Version None)
Quarter: 2012Q2

REPORT INFORMATION
  Report Type: 
  Country: None (occurrence: None)
  Receive Date: 20120517
  Receipt Date: 20120515
  Transmission Date: 20120825
  Serious: Yes (Death)
  Sender: FDA-Public Use
  Company Number: PHEH2012US010185

PATIENT
  Sex: Female

DRUGS (8)
  1. CALCIUM [Concomitant]
     Dosage: 500 OT, UNK
  2. LUMIGAN [Concomitant]
     Dosage: 0.01 %, UNK
  3. FLEXAGEN [Concomitant]
  4. AFINITOR [Suspect]
     Dosage: 10 MG, QD
     Route: 048
  5. ISTASOL [Concomitant]
     Dosage: 0.5 %, UNK
  6. GABAPENTIN [Concomitant]
     Dosage: 100 MG, UNK
  7. IRON [Concomitant]
     Dosage: 18 MG, UNK
  8. ZOCOR [Concomitant]
     Dosage: 10 MG, UNK

REACTIONS (1)
  - DEATH [None]
